FAERS Safety Report 16451681 (Version 1)
Quarter: 2019Q2

REPORT INFORMATION
  Report Type: Report from Study
  Country: CA (occurrence: CA)
  Receive Date: 20190619
  Receipt Date: 20190619
  Transmission Date: 20190711
  Serious: Yes (Other)
  Sender: FDA-Public Use
  Company Number: CA-TEVA-2019-CA-1066271

PATIENT
  Age: 69 Year
  Sex: Female

DRUGS (6)
  1. BACLOFEN. [Concomitant]
     Active Substance: BACLOFEN
  2. VITAMIN D [Concomitant]
     Active Substance: VITAMIN D NOS
  3. IRON [Concomitant]
     Active Substance: IRON
  4. COPAXONE [Suspect]
     Active Substance: GLATIRAMER ACETATE
     Indication: MULTIPLE SCLEROSIS
     Dosage: 20 MILLIGRAM/MILLILITERS DAILY;
     Route: 065
     Dates: start: 20150205
  5. METHYLPHENIDATE. [Concomitant]
     Active Substance: METHYLPHENIDATE
  6. PROMETRIUM [Concomitant]
     Active Substance: PROGESTERONE

REACTIONS (3)
  - Chest discomfort [Recovered/Resolved]
  - Erythema [Recovered/Resolved]
  - Nausea [Recovered/Resolved]

NARRATIVE: CASE EVENT DATE: 20190415
